FAERS Safety Report 10903746 (Version 1)
Quarter: 2015Q1

REPORT INFORMATION
  Report Type: Spontaneous
  Country: JP (occurrence: None)
  Receive Date: 20150304
  Receipt Date: 20150304
  Transmission Date: 20150721
  Serious: Yes (Other)
  Sender: FDA-Public Use
  Company Number: FK201500996

PATIENT

DRUGS (4)
  1. IFOSFAMIDE (MANUFACTURER UNKNOWN)  (IFOSFAMIDE)  (IFOSFAMIDE) [Suspect]
     Active Substance: IFOSFAMIDE
     Indication: ANGIOCENTRIC LYMPHOMA
  2. DEXAMETHASONE INJECTION (MANUFACTURER UNKNOWN)  (DEXAMETHASONE SODIUM) [Suspect]
     Active Substance: DEXAMETHASONE
     Indication: ANGIOCENTRIC LYMPHOMA
  3. ETOPOSIDE (MANUFACTURER UNKNOWN)   (ETOPOSIDE) (ETOPOSIDE) [Suspect]
     Active Substance: ETOPOSIDE
     Indication: ANGIOCENTRIC LYMPHOMA
  4. CARBOPLATIN (MANUFACTURER UNKNOWN)   (CARBOPLATIN) (CARBOPLATIN) [Suspect]
     Active Substance: CARBOPLATIN
     Indication: ANGIOCENTRIC LYMPHOMA

REACTIONS (1)
  - Neutropenia [None]
